FAERS Safety Report 6116298-8 (Version None)
Quarter: 2009Q1

REPORT INFORMATION
  Report Type: 
  Country: None (occurrence: None)
  Receive Date: 20090314
  Receipt Date: 20081205
  Transmission Date: 20090719
  Serious: No
  Sender: FDA-Public Use
  Company Number: US-ABBOTT-08P-163-0491627-00

PATIENT
  Sex: Female
  Weight: 118.04 kg

DRUGS (6)
  1. HUMIRA [Suspect]
     Indication: RHEUMATOID ARTHRITIS
     Dates: start: 20081124
  2. NAPROXEN [Concomitant]
     Indication: PAIN MANAGEMENT
     Dosage: 2 PILLS A DAY
  3. METHOTREXATE [Concomitant]
     Indication: RHEUMATOID ARTHRITIS
  4. PREGABALIN [Concomitant]
     Indication: FIBROMYALGIA
  5. PREDNISONE [Concomitant]
     Indication: INFLAMMATION
  6. DULOXETINE HYDROCHLORIDE [Concomitant]
     Indication: DEPRESSION

REACTIONS (3)
  - COUGH [None]
  - PYREXIA [None]
  - RHINORRHOEA [None]
